FAERS Safety Report 6605055-1 (Version None)
Quarter: 2010Q1

REPORT INFORMATION
  Report Type: 
  Country: None (occurrence: None)
  Receive Date: 20100226
  Receipt Date: 20100216
  Transmission Date: 20100710
  Serious: Yes (Hospitalization)
  Sender: FDA-Public Use
  Company Number: US-PFIZER INC-2010020541

PATIENT
  Sex: Female

DRUGS (5)
  1. ADRIAMYCIN PFS [Suspect]
     Indication: BREAST CANCER
     Dosage: UNK
     Dates: start: 20090826, end: 20091109
  2. IXABEPILONE [Suspect]
     Indication: BREAST CANCER
     Dosage: UNK
     Dates: start: 20091130, end: 20100201
  3. CYTOXAN [Suspect]
     Indication: BREAST CANCER
     Dosage: UNK
     Dates: start: 20090826, end: 20091109
  4. KLONOPIN [Concomitant]
  5. CIPROFLOXACIN [Concomitant]
     Dosage: UNK
     Dates: start: 20100122, end: 20100125

REACTIONS (1)
  - CHEST WALL ABSCESS [None]
